FAERS Safety Report 19231495 (Version 1)
Quarter: 2021Q2

REPORT INFORMATION
  Report Type: Report from Study
  Country: US (occurrence: US)
  Receive Date: 20210507
  Receipt Date: 20210507
  Transmission Date: 20210717
  Serious: Yes (Hospitalization)
  Sender: FDA-Public Use
  Company Number: US-EMD SERONO-9235953

PATIENT
  Age: 73 Year
  Sex: Female

DRUGS (3)
  1. COMIRNATY [Concomitant]
     Active Substance: TOZINAMERAN
     Indication: COVID-19 IMMUNISATION
     Dosage: FIRST DOSE
     Dates: start: 20210331
  2. REBIF [Suspect]
     Active Substance: INTERFERON BETA-1A
     Indication: PRODUCT USED FOR UNKNOWN INDICATION
     Route: 058
     Dates: start: 20040802
  3. COMIRNATY [Concomitant]
     Active Substance: TOZINAMERAN
     Dosage: SECOND DOSE
     Dates: start: 20210421

REACTIONS (4)
  - Dysstasia [Unknown]
  - Fall [Unknown]
  - Urinary tract infection [Unknown]
  - Product dose omission issue [Recovered/Resolved]

NARRATIVE: CASE EVENT DATE: 202104
